FAERS Safety Report 5115405-3 (Version None)
Quarter: 2006Q3

REPORT INFORMATION
  Report Type: 
  Country: None (occurrence: None)
  Receive Date: 20060922
  Receipt Date: 20060911
  Transmission Date: 20061208
  Serious: Yes (Hospitalization)
  Sender: FDA-Public Use
  Company Number: 2006110811

PATIENT
  Age: 88 Year
  Sex: Female

DRUGS (4)
  1. XANAX [Suspect]
     Dosage: ORAL
     Route: 048
     Dates: start: 20060725, end: 20060725
  2. LEXOTANIL (BROMAZEPAM) [Suspect]
     Dosage: ORAL
     Route: 048
     Dates: start: 20060725, end: 20060725
  3. ROHYPNOL (FLUNITRAZEPAM) [Suspect]
     Dosage: ORAL
     Route: 048
     Dates: start: 20060725, end: 20060725
  4. CITALOPRAM HYDROBROMIDE [Suspect]
     Indication: DEPRESSION
     Dosage: 4 MG (4 MG, 1 IN 1 D), ORAL
     Route: 048
     Dates: start: 20060731, end: 20060808

REACTIONS (3)
  - CONFUSIONAL STATE [None]
  - HYPONATRAEMIA [None]
  - SUICIDE ATTEMPT [None]
